FAERS Safety Report 22620016 (Version 1)
Quarter: 2023Q2

REPORT INFORMATION
  Report Type: Spontaneous
  Country: US (occurrence: US)
  Receive Date: 20230620
  Receipt Date: 20230620
  Transmission Date: 20230721
  Serious: No
  Sender: FDA-Public Use
  Company Number: US-IGSA-BIG0019276

PATIENT
  Sex: Female

DRUGS (5)
  1. HYPERRAB [Suspect]
     Active Substance: HUMAN RABIES VIRUS IMMUNE GLOBULIN
     Indication: Rabies
     Dosage: UNK, UNKNOWN
     Route: 030
     Dates: start: 20220605
  2. AMOXICILLIN\CLAVULANATE POTASSIUM [Concomitant]
     Active Substance: AMOXICILLIN\CLAVULANATE POTASSIUM
     Dosage: UNK UNK, BID
     Route: 048
     Dates: start: 20220606
  3. RABAVERT [Concomitant]
     Active Substance: RABIES VIRUS STRAIN FLURY LEP ANTIGEN (PROPIOLACTONE INACTIVATED)
     Indication: Rabies immunisation
     Dosage: UNK
     Dates: start: 20220605
  4. RABAVERT [Concomitant]
     Active Substance: RABIES VIRUS STRAIN FLURY LEP ANTIGEN (PROPIOLACTONE INACTIVATED)
     Dosage: UNK
     Dates: start: 20220608
  5. TETANUS TOXOID ADSORBED (VACCINE) [Concomitant]
     Active Substance: CLOSTRIDIUM TETANI TOXOID ANTIGEN (FORMALDEHYDE INACTIVATED)
     Indication: Rabies immunisation
     Dosage: UNK
     Dates: start: 20220605

REACTIONS (12)
  - Product administered at inappropriate site [Not Recovered/Not Resolved]
  - Hypersensitivity [Unknown]
  - Throat tightness [Not Recovered/Not Resolved]
  - Dysphagia [Recovering/Resolving]
  - Salivary hypersecretion [Recovering/Resolving]
  - Mood altered [Not Recovered/Not Resolved]
  - Headache [Recovered/Resolved]
  - Paraesthesia [Recovered/Resolved]
  - Cold sweat [Recovered/Resolved]
  - Feeling hot [Recovered/Resolved]
  - Malaise [Not Recovered/Not Resolved]
  - Incorrect dose administered [Unknown]

NARRATIVE: CASE EVENT DATE: 20220605
